FAERS Safety Report 15458020 (Version 3)
Quarter: 2021Q1

REPORT INFORMATION
  Report Type: Spontaneous
  Country: BR (occurrence: BR)
  Receive Date: 20181003
  Receipt Date: 20210322
  Transmission Date: 20210419
  Serious: Yes (Other)
  Sender: FDA-Public Use
  Company Number: BR-AMGEN-BRASP2018133334

PATIENT
  Sex: Female

DRUGS (1)
  1. PROLIA [Suspect]
     Active Substance: DENOSUMAB
     Indication: PROPHYLAXIS
     Dosage: UNK
     Route: 065
     Dates: start: 2014

REACTIONS (9)
  - Cataract [Not Recovered/Not Resolved]
  - Tooth disorder [Unknown]
  - Rhinitis allergic [Not Recovered/Not Resolved]
  - Toothache [Unknown]
  - Gingival bleeding [Not Recovered/Not Resolved]
  - Haemorrhoidal haemorrhage [Unknown]
  - Gingival swelling [Not Recovered/Not Resolved]
  - Colon dysplasia [Unknown]
  - Abdominal mass [Recovered/Resolved]

NARRATIVE: CASE EVENT DATE: 2016
